FAERS Safety Report 10366364 (Version 1)
Quarter: 2014Q3

REPORT INFORMATION
  Report Type: Not Available
  Country: NO (occurrence: NO)
  Receive Date: 20140806
  Receipt Date: 20140806
  Transmission Date: 20150326
  Serious: Yes (Hospitalization)
  Sender: FDA-Public Use
  Company Number: NO-MUNDIPHARMA DS AND PHARMACOVIGILANCE-GBR-2014-0019870

PATIENT
  Age: 32 Year
  Sex: Male

DRUGS (3)
  1. MORPHINE SULFATE. [Suspect]
     Active Substance: MORPHINE SULFATE
     Indication: ABDOMINAL PAIN UPPER
     Dosage: UNK
     Route: 065
     Dates: start: 20140707, end: 20140708
  2. AFIPRAN [Concomitant]
  3. PARACET                            /00020001/ [Concomitant]
     Active Substance: ACETAMINOPHEN

REACTIONS (2)
  - Confusional state [Recovered/Resolved]
  - Paranoia [Recovered/Resolved]

NARRATIVE: CASE EVENT DATE: 20140707
